FAERS Safety Report 7906937-0 (Version None)
Quarter: 2011Q4

REPORT INFORMATION
  Report Type: 
  Country: None (occurrence: None)
  Receive Date: 20111109
  Receipt Date: 20111109
  Transmission Date: 20120403
  Serious: Yes (Other)
  Sender: FDA-Public Use
  Company Number: None

PATIENT
  Sex: Female
  Weight: 107.5025 kg

DRUGS (1)
  1. FUROSEMIDE [Suspect]
     Indication: OEDEMA
     Dosage: 1 DAILY IN MOUTH TO SWALLOW TO THROAT DISSOLVES INTO BODY SYSTEM
     Route: 048

REACTIONS (3)
  - RASH [None]
  - PAIN [None]
  - BLISTER [None]
